FAERS Safety Report 18951535 (Version 1)
Quarter: 2021Q1

REPORT INFORMATION
  Report Type: Report from Study
  Country: None (occurrence: US)
  Receive Date: 20210301
  Receipt Date: 20210301
  Transmission Date: 20210420
  Serious: Yes (Other)
  Sender: FDA-Public Use
  Company Number: US-ABBVIE-21K-163-3792794-00

PATIENT
  Age: 52 Year
  Sex: Male

DRUGS (2)
  1. IMBRUVICA [Suspect]
     Active Substance: IBRUTINIB
     Route: 048
  2. IMBRUVICA [Suspect]
     Active Substance: IBRUTINIB
     Indication: CHRONIC LYMPHOCYTIC LEUKAEMIA
     Route: 048
     Dates: start: 20160130

REACTIONS (4)
  - Arthralgia [Not Recovered/Not Resolved]
  - Blindness [Recovering/Resolving]
  - Swelling [Not Recovered/Not Resolved]
  - Eye injury [Recovering/Resolving]

NARRATIVE: CASE EVENT DATE: 202102
